FAERS Safety Report 25486283 (Version 1)
Quarter: 2025Q2

REPORT INFORMATION
  Report Type: Spontaneous
  Country: US (occurrence: US)
  Receive Date: 20250626
  Receipt Date: 20250626
  Transmission Date: 20250717
  Serious: No
  Sender: ABBVIE
  Company Number: US-ABBVIE-6334051

PATIENT
  Age: 10 Year
  Sex: Female

DRUGS (1)
  1. LINACLOTIDE [Suspect]
     Active Substance: LINACLOTIDE
     Indication: Product used for unknown indication
     Route: 048
     Dates: start: 202506

REACTIONS (2)
  - Off label use [Unknown]
  - Retching [Unknown]

NARRATIVE: CASE EVENT DATE: 20250601
